FAERS Safety Report 8294569 (Version 2)
Quarter: 2012Q4

REPORT INFORMATION
  Report Type: Report from Study
  Country: JP (occurrence: JP)
  Receive Date: 20111216
  Receipt Date: 20121219
  Transmission Date: 20130627
  Serious: Yes (Other)
  Sender: FDA-Public Use
  Company Number: PHHY2011JP108689

PATIENT
  Age: 81 Year
  Sex: Female

DRUGS (9)
  1. AMN107 [Suspect]
     Indication: CHRONIC MYELOID LEUKAEMIA
     Dosage: 200 mg, BID
     Route: 048
     Dates: start: 20091112, end: 20091125
  2. AMN107 [Suspect]
     Dosage: 400 mg, BID
     Route: 048
     Dates: start: 20091126
  3. MEXITIL [Concomitant]
     Dosage: 200 mg
     Route: 048
     Dates: start: 20091112
  4. LANIRAPID [Concomitant]
     Dosage: 0.1 mg
     Route: 048
     Dates: start: 20091112
  5. BAYASPIRIN [Concomitant]
     Dosage: 100 mg
     Route: 048
     Dates: start: 20091112
  6. IRBESARTAN [Concomitant]
     Dosage: 100 mg
     Route: 048
     Dates: start: 20091112
  7. ARTIST [Concomitant]
     Dosage: 3 mg
     Route: 048
     Dates: start: 20091112
  8. SIGMART [Concomitant]
     Dosage: 15 mg
     Route: 048
     Dates: start: 20091112
  9. MEVALOTIN [Concomitant]
     Dosage: 5 mg
     Route: 048
     Dates: start: 20091112

REACTIONS (2)
  - Eosinophil count increased [Recovered/Resolved]
  - Blood glucose increased [Not Recovered/Not Resolved]
